FAERS Safety Report 8177862-8 (Version None)
Quarter: 2012Q1

REPORT INFORMATION
  Report Type: 
  Country: None (occurrence: None)
  Receive Date: 20120301
  Receipt Date: 20120224
  Transmission Date: 20120608
  Serious: Yes (Hospitalization, Other)
  Sender: FDA-Public Use
  Company Number: US-BAYER-2011-117800

PATIENT
  Age: 51 Year
  Sex: Male
  Weight: 70.295 kg

DRUGS (4)
  1. MARINOL [Concomitant]
  2. BETASERON [Suspect]
     Indication: RELAPSING-REMITTING MULTIPLE SCLEROSIS
     Dosage: 8 MIU, UNK
     Route: 058
     Dates: start: 20060413
  3. BETASERON [Suspect]
     Dosage: 8 MIU, QOD
  4. ATENOLOL [Concomitant]

REACTIONS (10)
  - HYPERTENSIVE CRISIS [None]
  - PULMONARY OEDEMA [None]
  - INJECTION SITE PAIN [None]
  - INSOMNIA [None]
  - INJECTION SITE ERYTHEMA [None]
  - CENTRAL NERVOUS SYSTEM LESION [None]
  - HYPERTENSION [None]
  - DYSPNOEA [None]
  - HAEMOPTYSIS [None]
  - PAIN [None]
